FAERS Safety Report 9991153 (Version 1)
Quarter: 2014Q1

REPORT INFORMATION
  Report Type: Report from Study
  Country: US (occurrence: US)
  Receive Date: 20140310
  Receipt Date: 20140310
  Transmission Date: 20141002
  Serious: No
  Sender: FDA-Public Use
  Company Number: US-ABBVIE-13P-163-1134003-00

PATIENT
  Age: 70 Year
  Sex: Male

DRUGS (4)
  1. HUMIRA [Suspect]
     Indication: CROHN^S DISEASE
     Dates: start: 20130730, end: 20130730
  2. HUMIRA [Suspect]
     Dates: start: 20130813, end: 20130813
  3. HUMIRA [Suspect]
  4. BUDESONIDE [Concomitant]
     Indication: CROHN^S DISEASE
     Dosage: 3 CAPSULES DAILY

REACTIONS (4)
  - Dizziness [Not Recovered/Not Resolved]
  - Fatigue [Not Recovered/Not Resolved]
  - Visual impairment [Not Recovered/Not Resolved]
  - Sinus disorder [Not Recovered/Not Resolved]
